FAERS Safety Report 5786753-9 (Version None)
Quarter: 2008Q2

REPORT INFORMATION
  Report Type: 
  Country: None (occurrence: None)
  Receive Date: 20080618
  Receipt Date: 20080610
  Transmission Date: 20081010
  Serious: Yes (Other)
  Sender: FDA-Public Use
  Company Number: 2008SP001377

PATIENT
  Age: 17 Year
  Sex: Female
  Weight: 68.1 kg

DRUGS (2)
  1. ALVESCO [Suspect]
     Dosage: 160 UG; 1X; INHALATION
     Route: 055
     Dates: start: 20080530, end: 20080530
  2. ALBUTEROL [Concomitant]

REACTIONS (3)
  - BRONCHOSPASM [None]
  - FEELING ABNORMAL [None]
  - WHEEZING [None]
